FAERS Safety Report 8298652-1 (Version None)
Quarter: 2012Q2

REPORT INFORMATION
  Report Type: 
  Country: None (occurrence: None)
  Receive Date: 20120419
  Receipt Date: 20120410
  Transmission Date: 20120825
  Serious: Yes (Hospitalization)
  Sender: FDA-Public Use
  Company Number: BR-ASTRAZENECA-2012SE23355

PATIENT
  Age: 79 Year
  Sex: Female
  Weight: 62 kg

DRUGS (8)
  1. WARFARIN SODIUM [Concomitant]
     Route: 048
  2. PANTOPRAZOLE [Concomitant]
     Route: 048
  3. DILTIAZEM HYDROCHLORIDE [Concomitant]
     Route: 048
  4. ATENSIN [Concomitant]
     Route: 048
  5. FORTEN [Concomitant]
     Route: 048
  6. ATACAND [Suspect]
     Indication: HYPERTENSION
     Route: 048
  7. INDAPAMIDE [Concomitant]
     Route: 048
  8. LEXAPRO [Concomitant]
     Route: 048

REACTIONS (2)
  - DIZZINESS [None]
  - CHROMATOPSIA [None]
